FAERS Safety Report 12040848 (Version 1)
Quarter: 2016Q1

REPORT INFORMATION
  Report Type: Report from Study
  Country: US (occurrence: US)
  Receive Date: 20160208
  Receipt Date: 20160208
  Transmission Date: 20160526
  Serious: Yes (Hospitalization)
  Sender: FDA-Public Use
  Company Number: US-ABBVIE-15P-163-1338195-00

PATIENT
  Age: 60 Year
  Sex: Female

DRUGS (1)
  1. HUMIRA [Suspect]
     Active Substance: ADALIMUMAB
     Indication: RHEUMATOID ARTHRITIS
     Route: 065
     Dates: start: 20140120, end: 20141212

REACTIONS (7)
  - Gastroenteritis viral [Recovered/Resolved]
  - Drug ineffective [Not Recovered/Not Resolved]
  - Diarrhoea [Unknown]
  - Rheumatoid arthritis [Not Recovered/Not Resolved]
  - Influenza [Unknown]
  - Vomiting [Unknown]
  - Arthralgia [Unknown]

NARRATIVE: CASE EVENT DATE: 20140120
